FAERS Safety Report 16842583 (Version 1)
Quarter: 2019Q3

REPORT INFORMATION
  Report Type: Spontaneous
  Country: GB (occurrence: GB)
  Receive Date: 20190924
  Receipt Date: 20190924
  Transmission Date: 20191005
  Serious: Yes (Other)
  Sender: FDA-Public Use
  Company Number: GB-TEVA-2019-GB-1111575

PATIENT
  Age: 27 Year
  Sex: Female
  Weight: 55 kg

DRUGS (6)
  1. NITROFURANTOIN. [Suspect]
     Active Substance: NITROFURANTOIN
     Indication: URINARY TRACT INFECTION
     Dosage: 200 MG 1 DAYS
     Dates: start: 20190821
  2. HYDROXOCOBALAMIN [Concomitant]
     Active Substance: HYDROXOCOBALAMIN
     Dosage: USE AS DIRECTED. SURGERY TO CLAIM.
     Dates: start: 20190621
  3. FRAGMIN [Concomitant]
     Active Substance: DALTEPARIN SODIUM
     Dosage: AS ADVISED BY OBSTETRICIAN.
     Route: 058
     Dates: start: 20180924, end: 20190723
  4. MIRTAZAPINE. [Concomitant]
     Active Substance: MIRTAZAPINE
     Indication: ANXIETY
     Dosage: AT NIGHT. 1 DOSAGE FORMS 1 DAYS
     Dates: start: 20190626, end: 20190821
  5. AMOXICILLIN. [Concomitant]
     Active Substance: AMOXICILLIN
     Dosage: 3 DOSAGE FORMS 1 DAYS
     Dates: start: 20190823
  6. ACETYLSALICYLIC ACID [Concomitant]
     Active Substance: ASPIRIN
     Dosage: AS ADVISED BY OBSTETRICIAN 1 DOSAGE FORMS 1 DAYS
     Dates: start: 20190723

REACTIONS (2)
  - Feeling abnormal [Recovered/Resolved]
  - Dizziness [Recovered/Resolved]
